FAERS Safety Report 5413323-4 (Version None)
Quarter: 2007Q3

REPORT INFORMATION
  Report Type: 
  Country: None (occurrence: None)
  Receive Date: 20070810
  Receipt Date: 20070807
  Transmission Date: 20080115
  Serious: Yes (Other)
  Sender: FDA-Public Use
  Company Number: 2007SP013974

PATIENT
  Age: 61 Year
  Sex: Male

DRUGS (4)
  1. CLARITIN [Suspect]
     Indication: URTICARIA CHRONIC
     Dosage: 10 MG; ; PO, 20 MG; ; PO
     Route: 048
     Dates: start: 20070310, end: 20070625
  2. CLARITIN [Suspect]
     Indication: URTICARIA CHRONIC
     Dosage: 10 MG; ; PO, 20 MG; ; PO
     Route: 048
     Dates: start: 20070626, end: 20070704
  3. ATARAX [Suspect]
     Indication: URTICARIA CHRONIC
     Dosage: 25 MG; ; PO
     Route: 048
     Dates: start: 20070310, end: 20070704
  4. ZANTAC 150 [Concomitant]

REACTIONS (4)
  - DRUG EFFECT DECREASED [None]
  - IMPAIRED DRIVING ABILITY [None]
  - ROAD TRAFFIC ACCIDENT [None]
  - SOMNOLENCE [None]
